FAERS Safety Report 6277369-9 (Version None)
Quarter: 2009Q3

REPORT INFORMATION
  Report Type: 
  Country: None (occurrence: None)
  Receive Date: 20090722
  Receipt Date: 20090422
  Transmission Date: 20100115
  Serious: No
  Sender: FDA-Public Use
  Company Number: US-BRISTOL-MYERS SQUIBB COMPANY-14596670

PATIENT
  Age: 75 Year
  Sex: Female
  Weight: 91 kg

DRUGS (4)
  1. WARFARIN SODIUM [Suspect]
     Indication: THROMBOSIS
     Dates: start: 20080801
  2. WARFARIN SODIUM [Suspect]
     Indication: PULMONARY THROMBOSIS
     Dates: start: 20080801
  3. POTASSIUM CHLORIDE [Concomitant]
  4. LASIX [Concomitant]

REACTIONS (1)
  - ALOPECIA [None]
